FAERS Safety Report 18142823 (Version 1)
Quarter: 2020Q3

REPORT INFORMATION
  Report Type: Spontaneous
  Country: US (occurrence: US)
  Receive Date: 20200812
  Receipt Date: 20200812
  Transmission Date: 20201103
  Serious: Yes (Other)
  Sender: FDA-Public Use
  Company Number: US-NOVOPROD-745728

PATIENT
  Age: 80 Year
  Sex: Male

DRUGS (1)
  1. NOVOLOG [Suspect]
     Active Substance: INSULIN ASPART
     Indication: PRODUCT USED FOR UNKNOWN INDICATION
     Dosage: UNK
     Route: 058

REACTIONS (4)
  - Deafness unilateral [Not Recovered/Not Resolved]
  - Expired product administered [Unknown]
  - Product communication issue [Not Recovered/Not Resolved]
  - Blindness unilateral [Not Recovered/Not Resolved]
